FAERS Safety Report 7122704-2 (Version None)
Quarter: 2010Q4

REPORT INFORMATION
  Report Type: 
  Country: None (occurrence: None)
  Receive Date: 20101124
  Receipt Date: 20101118
  Transmission Date: 20110411
  Serious: Yes (Death)
  Sender: FDA-Public Use
  Company Number: US-GILEAD-2010-0033517

PATIENT
  Sex: Male

DRUGS (7)
  1. LETAIRIS [Suspect]
     Indication: PULMONARY ARTERIAL HYPERTENSION
     Dates: start: 20100617, end: 20100930
  2. REVATIO [Concomitant]
  3. VENTAVIS [Concomitant]
     Indication: PULMONARY HYPERTENSION
  4. FUROSEMIDE [Concomitant]
  5. CARVEDILOL [Concomitant]
  6. LOSARTAN [Concomitant]
  7. NEXIUM [Concomitant]

REACTIONS (2)
  - ANAEMIA [None]
  - PULMONARY HYPERTENSION [None]
